FAERS Safety Report 25920300 (Version 3)
Quarter: 2025Q4

REPORT INFORMATION
  Report Type: Spontaneous
  Country: ID (occurrence: ID)
  Receive Date: 20251014
  Receipt Date: 20251105
  Transmission Date: 20260118
  Serious: Yes (Other)
  Sender: NOVARTIS
  Company Number: ID-002147023-NVSC2025ID158001

PATIENT
  Age: 7 Year
  Sex: Male

DRUGS (7)
  1. MYFORTIC [Suspect]
     Active Substance: MYCOPHENOLATE SODIUM
     Indication: Nephrotic syndrome
     Dosage: 360 MG, BID
     Route: 065
  2. CYCLOSPORINE [Suspect]
     Active Substance: CYCLOSPORINE
     Indication: Nephrotic syndrome
     Dosage: 100 MG, BID
     Route: 065
  3. ASPIRIN [Concomitant]
     Active Substance: ASPIRIN
     Indication: Nephrotic syndrome
     Dosage: 40 MG, QD
     Route: 065
  4. Calnic [Concomitant]
     Indication: Nephrotic syndrome
     Dosage: 5 ML, QD
     Route: 065
  5. DILTIAZEM [Concomitant]
     Active Substance: DILTIAZEM
     Indication: Nephrotic syndrome
     Dosage: 40 MG, BID
     Route: 065
  6. CHOLECALCIFEROL [Concomitant]
     Active Substance: CHOLECALCIFEROL
     Indication: Nephrotic syndrome
     Dosage: 400 IU, QD
     Route: 065
  7. PREDNISOLONE [Concomitant]
     Active Substance: PREDNISOLONE
     Indication: Nephrotic syndrome
     Dosage: 15 MG, QD
     Route: 065

REACTIONS (2)
  - Gingival swelling [Recovered/Resolved]
  - Malpositioned teeth [Recovered/Resolved]
